FAERS Safety Report 24366856 (Version 1)
Quarter: 2024Q3

REPORT INFORMATION
  Report Type: Report from Study
  Country: US (occurrence: US)
  Receive Date: 20240926
  Receipt Date: 20240926
  Transmission Date: 20241017
  Serious: Yes (Other)
  Sender: NOVARTIS
  Company Number: US-002147023-NVSC2024US189742

PATIENT
  Age: 75 Year
  Sex: Female

DRUGS (1)
  1. LEQVIO [Suspect]
     Active Substance: INCLISIRAN SODIUM
     Indication: Product used for unknown indication
     Dosage: UNK
     Route: 058
     Dates: start: 20240901

REACTIONS (10)
  - Rheumatoid arthritis [Unknown]
  - Illness [Unknown]
  - Arthritis [Unknown]
  - Arthralgia [Unknown]
  - Myositis [Unknown]
  - Myalgia [Unknown]
  - Pain in extremity [Unknown]
  - Mobility decreased [Unknown]
  - Hypersensitivity [Unknown]
  - Infusion related reaction [Unknown]

NARRATIVE: CASE EVENT DATE: 20240901
